FAERS Safety Report 17476472 (Version 2)
Quarter: 2020Q1

REPORT INFORMATION
  Report Type: Spontaneous
  Country: GB (occurrence: GB)
  Receive Date: 20200228
  Receipt Date: 20200305
  Transmission Date: 20200409
  Serious: Yes (Other)
  Sender: FDA-Public Use
  Company Number: ALC2019GB003665

PATIENT

DRUGS (9)
  1. DICLOFENAC SODIUM. [Suspect]
     Active Substance: DICLOFENAC SODIUM
     Indication: PRODUCT USED FOR UNKNOWN INDICATION
     Dosage: UNK UNK, QID (FOUR TIMES PER DAY)
     Route: 065
  2. LEVOFLOXACIN. [Suspect]
     Active Substance: LEVOFLOXACIN
     Indication: PRODUCT USED FOR UNKNOWN INDICATION
     Dosage: 0.5 %, Q2H
     Route: 065
  3. PREDNISOLONE. [Suspect]
     Active Substance: PREDNISOLONE
     Dosage: 1 %, QID
     Route: 065
  4. CHLORAMPHENICOL [Suspect]
     Active Substance: CHLORAMPHENICOL
     Dosage: 1 %, QD (EVERY NIGHT)
     Route: 065
  5. CYCLOPENTOLATE HCL 1% [Suspect]
     Active Substance: CYCLOPENTOLATE HYDROCHLORIDE
     Indication: PRODUCT USED FOR UNKNOWN INDICATION
     Dosage: 1 %, TID
     Route: 065
  6. PREDNISOLONE. [Suspect]
     Active Substance: PREDNISOLONE
     Indication: PRODUCT USED FOR UNKNOWN INDICATION
     Dosage: 0.5 %, QID
     Route: 065
  7. CHLORAMPHENICOL [Suspect]
     Active Substance: CHLORAMPHENICOL
     Indication: PRODUCT USED FOR UNKNOWN INDICATION
     Dosage: 0.5 %, QID (FOUR TIMES PER DAY)
     Route: 065
  8. LEVOFLOXACIN. [Suspect]
     Active Substance: LEVOFLOXACIN
     Dosage: 1 %, Q2H
     Route: 065
  9. SODIUM HYALURONATE [Suspect]
     Active Substance: HYALURONATE SODIUM
     Indication: PRODUCT USED FOR UNKNOWN INDICATION
     Dosage: 0.2 %, Q2H
     Route: 065

REACTIONS (1)
  - Keratopathy [Recovered/Resolved with Sequelae]
